FAERS Safety Report 26001579 (Version 1)
Quarter: 2025Q4

REPORT INFORMATION
  Report Type: Spontaneous
  Country: CA (occurrence: CA)
  Receive Date: 20251105
  Receipt Date: 20251105
  Transmission Date: 20260117
  Serious: Yes (Other)
  Sender: NOVARTIS
  Company Number: CA-002147023-NVSC2025CA168325

PATIENT
  Age: 4 Month
  Sex: Male

DRUGS (3)
  1. TRAMETINIB [Suspect]
     Active Substance: TRAMETINIB
     Indication: Cardiofaciocutaneous syndrome
     Dosage: 0.025 MG/KG, QD
     Route: 048
  2. PROPRANOLOL [Concomitant]
     Active Substance: PROPRANOLOL HYDROCHLORIDE
     Indication: Cardiofaciocutaneous syndrome
     Dosage: UNK
     Route: 065
  3. SPIRONOLACTONE [Concomitant]
     Active Substance: SPIRONOLACTONE
     Indication: Cardiofaciocutaneous syndrome
     Dosage: UNK
     Route: 065

REACTIONS (3)
  - Eczema [Unknown]
  - Oedema [Unknown]
  - Off label use [Unknown]
